FAERS Safety Report 9422363 (Version 1)
Quarter: 2013Q3

REPORT INFORMATION
  Report Type: Spontaneous
  Country: IT (occurrence: IT)
  Receive Date: 20130726
  Receipt Date: 20130726
  Transmission Date: 20140515
  Serious: Yes (Other)
  Sender: FDA-Public Use
  Company Number: IT-BAYER-2013-089156

PATIENT
  Age: 26 Year
  Sex: Female

DRUGS (1)
  1. ASPIRINA [Suspect]
     Indication: HEADACHE
     Dosage: 500 MG, ONCE
     Route: 048
     Dates: start: 20130530, end: 20130530

REACTIONS (3)
  - Rash erythematous [Recovered/Resolved]
  - Pruritus [Recovered/Resolved]
  - Chills [Recovered/Resolved]
